FAERS Safety Report 8212305-7 (Version None)
Quarter: 2012Q1

REPORT INFORMATION
  Report Type: 
  Country: None (occurrence: None)
  Receive Date: 20120315
  Receipt Date: 20120308
  Transmission Date: 20120608
  Serious: Yes (Hospitalization)
  Sender: FDA-Public Use
  Company Number: US-ACTELION-A-US2012-60491

PATIENT

DRUGS (5)
  1. PLAVIX [Concomitant]
  2. ADCIRCA [Concomitant]
  3. TRACLEER [Suspect]
     Indication: PULMONARY ARTERIAL HYPERTENSION
     Dosage: UNK
     Route: 048
     Dates: start: 20110506
  4. OXYGEN [Concomitant]
  5. INSULIN [Concomitant]

REACTIONS (5)
  - GASTROINTESTINAL HAEMORRHAGE [None]
  - TRANSFUSION [None]
  - DYSPNOEA [None]
  - GASTRIC HAEMORRHAGE [None]
  - HIATUS HERNIA [None]
